FAERS Safety Report 8684605 (Version 2)
Quarter: 2012Q4

REPORT INFORMATION
  Report Type: 
  Country: JP (occurrence: JP)
  Receive Date: 20120726
  Receipt Date: 20120905
  Transmission Date: 20130627
  Serious: Yes (Hospitalization, Other)
  Sender: FDA-Public Use
  Company Number: JP-ROCHE-1087310

PATIENT
  Age: 65 Year
  Sex: Female

DRUGS (3)
  1. VESANOID [Suspect]
     Indication: ACUTE PROMYELOCYTIC LEUKAEMIA
     Route: 048
     Dates: start: 20110906
  2. VESANOID [Suspect]
     Indication: ACUTE PROMYELOCYTIC LEUKAEMIA
  3. IDAMYCIN [Concomitant]
     Indication: ACUTE PROMYELOCYTIC LEUKAEMIA
     Dosage: Dosage is uncertain.
     Route: 042

REACTIONS (2)
  - Retinoic acid syndrome [Recovered/Resolved]
  - Muscle abscess [Unknown]
